FAERS Safety Report 7478063-9 (Version None)
Quarter: 2011Q2

REPORT INFORMATION
  Report Type: 
  Country: None (occurrence: None)
  Receive Date: 20110513
  Receipt Date: 20110429
  Transmission Date: 20111010
  Serious: Yes (Other)
  Sender: FDA-Public Use
  Company Number: US-CELGENEUS-163-20785-11050239

PATIENT
  Age: 38 Year
  Sex: Female

DRUGS (7)
  1. DEXAMETHASONE [Suspect]
     Route: 065
  2. CYCLOPHOSPHAMIDE [Concomitant]
     Dosage: 4 G/M2
     Route: 051
  3. BORTEZOMIB [Suspect]
     Route: 065
  4. MELPHALAN HYDROCHLORIDE [Concomitant]
     Dosage: 200 MILLIGRAM/SQ. METER
     Route: 051
  5. THALOMID [Suspect]
     Route: 048
  6. AMIFOSTINE [Concomitant]
     Dosage: 740 MILLIGRAM/SQ. METER
     Route: 051
  7. FILGRASTIM [Concomitant]
     Dosage: 10 UG/KG
     Route: 058

REACTIONS (2)
  - ACUTE GRAFT VERSUS HOST DISEASE IN INTESTINE [None]
  - ACUTE GRAFT VERSUS HOST DISEASE IN LIVER [None]
